FAERS Safety Report 4608016-7 (Version None)
Quarter: 2005Q2

REPORT INFORMATION
  Report Type: 
  Country: None (occurrence: None)
  Receive Date: 20050303
  Receipt Date: 20041207
  Transmission Date: 20051028
  Serious: No
  Sender: FDA-Public Use
  Company Number: 210929

PATIENT
  Age: 40 Year
  Sex: Female

DRUGS (5)
  1. XOLAIR [Suspect]
     Indication: ASTHMA
     Dosage: 1 MONTH
     Dates: start: 20040701
  2. PULMICORT [Concomitant]
  3. QVAR (BECLOMETHASONE DIPROPIONATE) [Concomitant]
  4. ALBUTEROL (ALBUTEROL SULFATE, ALBUTEROL) [Concomitant]
  5. XOPENEX [Concomitant]

REACTIONS (1)
  - WEIGHT INCREASED [None]
